FAERS Safety Report 8802499 (Version 1)
Quarter: 2012Q4

REPORT INFORMATION
  Report Type: 
  Country: US (occurrence: US)
  Receive Date: 20120921
  Receipt Date: 20120921
  Transmission Date: 20130627
  Serious: Yes (Other)
  Sender: FDA-Public Use
  Company Number: US-009507513-1209USA007247

PATIENT
  Age: 61 Year
  Sex: Female

DRUGS (1)
  1. FOSAMAX [Suspect]
     Indication: OSTEOPENIA
     Dosage: UNK
     Route: 048
     Dates: end: 20090921

REACTIONS (3)
  - Osteonecrosis of jaw [Recovering/Resolving]
  - Medical device removal [Recovering/Resolving]
  - Tooth extraction [Recovering/Resolving]
